FAERS Safety Report 5626341-8 (Version None)
Quarter: 2008Q1

REPORT INFORMATION
  Report Type: 
  Country: None (occurrence: None)
  Receive Date: 20080212
  Receipt Date: 20080212
  Transmission Date: 20080703
  Serious: No
  Sender: FDA-Public Use
  Company Number: None

PATIENT
  Sex: Female

DRUGS (1)
  1. PLAQUENIL [Suspect]
     Dosage: BID  PO DAILY
     Route: 048

REACTIONS (3)
  - CHILLS [None]
  - DRUG INTOLERANCE [None]
  - TREMOR [None]
